FAERS Safety Report 6272864-0 (Version None)
Quarter: 2009Q3

REPORT INFORMATION
  Report Type: 
  Country: None (occurrence: None)
  Receive Date: 20090717
  Receipt Date: 20090715
  Transmission Date: 20100115
  Serious: Yes (Hospitalization)
  Sender: FDA-Public Use
  Company Number: US-AMGEN-US325810

PATIENT
  Sex: Male

DRUGS (2)
  1. PANITUMUMAB [Suspect]
     Indication: COLORECTAL CANCER
     Route: 042
     Dates: start: 20081015, end: 20090107
  2. AMG 655 [Suspect]
     Indication: COLORECTAL CANCER
     Route: 042
     Dates: start: 20081015, end: 20090107

REACTIONS (1)
  - GASTROENTERITIS [None]
